FAERS Safety Report 10925760 (Version 1)
Quarter: 2015Q1

REPORT INFORMATION
  Report Type: Spontaneous
  Country: US (occurrence: US)
  Receive Date: 20150318
  Receipt Date: 20150318
  Transmission Date: 20150721
  Serious: Yes (Other)
  Sender: FDA-Public Use
  Company Number: US-SA-2015SA031992

PATIENT
  Age: 84 Year
  Sex: Female

DRUGS (4)
  1. SPIRIVA [Suspect]
     Active Substance: TIOTROPIUM BROMIDE MONOHYDRATE
     Indication: BRONCHIECTASIS
     Dosage: DOSE:1 PUFF(S)
     Route: 055
  2. LASIX [Suspect]
     Active Substance: FUROSEMIDE
     Route: 065
  3. ADVAIR DISKUS [Suspect]
     Active Substance: FLUTICASONE PROPIONATE\SALMETEROL XINAFOATE
     Indication: BRONCHIECTASIS
     Dosage: FORM:INHALATIONAL POWDER DOSE:1 PUFF(S)
  4. OMEPRAZOLE. [Suspect]
     Active Substance: OMEPRAZOLE
     Route: 065

REACTIONS (13)
  - Eye infection fungal [Unknown]
  - Hypoaesthesia [Unknown]
  - Ear pain [Unknown]
  - Dysphonia [Unknown]
  - Tongue ulceration [Unknown]
  - Tongue discolouration [Unknown]
  - Nausea [Unknown]
  - Paraesthesia [Unknown]
  - Chest pain [Unknown]
  - Tremor [Unknown]
  - Pollakiuria [Unknown]
  - Thirst [Unknown]
  - Head titubation [Unknown]
